FAERS Safety Report 25352971 (Version 2)
Quarter: 2025Q2

REPORT INFORMATION
  Report Type: Spontaneous
  Country: JP (occurrence: JP)
  Receive Date: 20250523
  Receipt Date: 20250623
  Transmission Date: 20250716
  Serious: Yes (Death, Other)
  Sender: PFIZER
  Company Number: JP-PFIZER INC-PV202500060564

PATIENT
  Age: 57 Year
  Sex: Male

DRUGS (9)
  1. ELREXFIO [Suspect]
     Active Substance: ELRANATAMAB-BCMM
     Indication: Plasma cell myeloma
     Route: 058
  2. ZOVIRAX [Concomitant]
     Active Substance: ACYCLOVIR
     Route: 048
  3. ALFACALCIDOL [Concomitant]
     Active Substance: ALFACALCIDOL
     Route: 048
  4. CALTAN [Concomitant]
     Active Substance: CALCIUM CARBONATE
     Route: 048
  5. ESOMEPRAZOLE [Concomitant]
     Active Substance: ESOMEPRAZOLE
     Route: 048
  6. FUROSEMIDE [Concomitant]
     Active Substance: FUROSEMIDE
     Route: 048
  7. FEBUXOSTAT [Concomitant]
     Active Substance: FEBUXOSTAT
     Route: 048
  8. NIFEDIPINE [Concomitant]
     Active Substance: NIFEDIPINE
     Route: 048
  9. ENTRESTO [Concomitant]
     Active Substance: SACUBITRIL\VALSARTAN
     Route: 048

REACTIONS (5)
  - Death [Fatal]
  - Plasma cell myeloma [Unknown]
  - Malignant neoplasm progression [Unknown]
  - Cytokine release syndrome [Unknown]
  - Infection [Unknown]

NARRATIVE: CASE EVENT DATE: 20240612
